FAERS Safety Report 22061820 (Version 1)
Quarter: 2023Q1

REPORT INFORMATION
  Report Type: Report from Study
  Country: AT (occurrence: AT)
  Receive Date: 20230304
  Receipt Date: 20230304
  Transmission Date: 20230417
  Serious: Yes (Hospitalization)
  Sender: FDA-Public Use
  Company Number: AT-ABBVIE-4272506

PATIENT
  Sex: Female

DRUGS (3)
  1. HUMIRA [Suspect]
     Active Substance: ADALIMUMAB
     Indication: Axial spondyloarthritis
     Route: 058
  2. HUMIRA [Suspect]
     Active Substance: ADALIMUMAB
     Route: 058
     Dates: start: 2017
  3. CALCIUM\VITAMINS [Concomitant]
     Active Substance: CALCIUM\VITAMINS
     Indication: Prophylaxis

REACTIONS (2)
  - Knee operation [Not Recovered/Not Resolved]
  - Gait disturbance [Not Recovered/Not Resolved]
